FAERS Safety Report 7556496-X (Version None)
Quarter: 2011Q2

REPORT INFORMATION
  Report Type: 
  Country: None (occurrence: None)
  Receive Date: 20110620
  Receipt Date: 20110606
  Transmission Date: 20111010
  Serious: Yes (Hospitalization, Other)
  Sender: FDA-Public Use
  Company Number: JP-JNJFOC-20110410422

PATIENT
  Sex: Female
  Weight: 49 kg

DRUGS (16)
  1. REMICADE [Suspect]
     Indication: COLITIS ULCERATIVE
     Route: 042
     Dates: start: 20100714
  2. REMICADE [Suspect]
     Route: 042
     Dates: start: 20101108
  3. PREDNISOLONE [Suspect]
     Route: 048
     Dates: start: 20100714
  4. PENTASA [Suspect]
     Indication: COLITIS ULCERATIVE
     Route: 048
     Dates: start: 20040101
  5. REMICADE [Suspect]
     Route: 042
     Dates: start: 20100914
  6. REMICADE [Suspect]
     Route: 042
     Dates: start: 20101227
  7. PREDNISOLONE [Suspect]
     Route: 048
     Dates: start: 20100708
  8. PREDNISOLONE [Suspect]
     Route: 048
     Dates: start: 20100601
  9. FERRO-GRADUMET [Concomitant]
     Indication: IRON DEFICIENCY ANAEMIA
     Route: 048
     Dates: start: 20100624
  10. PREDNISOLONE [Suspect]
     Indication: COLITIS ULCERATIVE
     Route: 048
     Dates: start: 20100701
  11. BIO-THREE [Concomitant]
     Indication: COLITIS ULCERATIVE
     Route: 048
     Dates: start: 20100604
  12. SULFASALAZINE [Concomitant]
     Route: 048
     Dates: start: 20040101
  13. PENTASA [Suspect]
     Route: 048
     Dates: start: 20100608, end: 20100729
  14. LANSOPRAZOLE [Concomitant]
     Indication: PROPHYLAXIS AGAINST GASTROINTESTINAL ULCER
     Route: 048
     Dates: start: 20100319
  15. REMICADE [Suspect]
     Route: 042
     Dates: start: 20100622
  16. CYCLOSPORINE [Concomitant]
     Dates: start: 20100601, end: 20100714

REACTIONS (3)
  - ENTEROCOLITIS INFECTIOUS [None]
  - PNEUMOCYSTIS JIROVECI PNEUMONIA [None]
  - COLITIS ULCERATIVE [None]
